FAERS Safety Report 5711085-4 (Version None)
Quarter: 2008Q2

REPORT INFORMATION
  Report Type: 
  Country: None (occurrence: None)
  Receive Date: 20080421
  Receipt Date: 20080410
  Transmission Date: 20081010
  Serious: Yes (Life-Threatening, Hospitalization, Disabling, Other)
  Sender: FDA-Public Use
  Company Number: NL-JNJFOC-20080403148

PATIENT
  Sex: Male
  Weight: 64 kg

DRUGS (7)
  1. REMICADE [Suspect]
     Route: 042
  2. REMICADE [Suspect]
     Route: 042
  3. REMICADE [Suspect]
     Indication: CROHN'S DISEASE
     Route: 042
  4. AZATHIOPRINE [Concomitant]
     Indication: CROHN'S DISEASE
  5. PANTOPRAZOL [Concomitant]
     Indication: GASTROOESOPHAGEAL REFLUX DISEASE
  6. HYDROXYCOBALAMIN [Concomitant]
     Indication: SPINAL CORD DISORDER
  7. HYDROXYCOBALAMIN [Concomitant]
     Indication: VITAMIN B12 DEFICIENCY

REACTIONS (3)
  - INTESTINAL OBSTRUCTION [None]
  - MALNUTRITION [None]
  - PERITONITIS BACTERIAL [None]
